FAERS Safety Report 10465846 (Version 1)
Quarter: 2014Q3

REPORT INFORMATION
  Report Type: Spontaneous
  Country: DE (occurrence: DE)
  Receive Date: 20140921
  Receipt Date: 20140921
  Transmission Date: 20150326
  Serious: Yes (Other)
  Sender: FDA-Public Use
  Company Number: DE-BRISTOL-MYERS SQUIBB COMPANY-21412812

PATIENT
  Age: 1 Day
  Sex: Male
  Weight: 3 kg

DRUGS (9)
  1. RAMIPRIL. [Suspect]
     Active Substance: RAMIPRIL
     Indication: TYPE 2 DIABETES MELLITUS
     Dosage: LAST DOSE:25-APR-2013
     Route: 064
     Dates: start: 20130310, end: 20130425
  2. L-THYROXINE [Concomitant]
     Active Substance: LEVOTHYROXINE
     Indication: AUTOIMMUNE THYROIDITIS
  3. METHYLDOPA. [Concomitant]
     Active Substance: METHYLDOPA
     Indication: HYPERTENSION
  4. METOPROLOL [Concomitant]
     Active Substance: METOPROLOL
     Indication: HYPERTENSION
  5. IODINE [Concomitant]
     Active Substance: IODINE
     Indication: PROPHYLAXIS OF NEURAL TUBE DEFECT
  6. METFORMIN HCL [Suspect]
     Active Substance: METFORMIN HYDROCHLORIDE
     Indication: TYPE 2 DIABETES MELLITUS
     Dosage: LAST DOSE:25-APR-2013
     Route: 064
     Dates: start: 20130310, end: 20130425
  7. RAMIPRIL. [Suspect]
     Active Substance: RAMIPRIL
     Indication: HYPERTENSION
     Dosage: LAST DOSE:25-APR-2013
     Route: 064
     Dates: start: 20130310, end: 20130425
  8. FOLIC ACID. [Concomitant]
     Active Substance: FOLIC ACID
     Indication: PROPHYLAXIS OF NEURAL TUBE DEFECT
  9. SITAGLIPTIN PHOSPHATE [Suspect]
     Active Substance: SITAGLIPTIN PHOSPHATE
     Indication: TYPE 2 DIABETES MELLITUS
     Dosage: LAST DOSE:25-APR-2013
     Route: 064
     Dates: start: 20130310, end: 20130425

REACTIONS (4)
  - Atrial septal defect [Unknown]
  - Large for dates baby [Recovering/Resolving]
  - Diabetic foetopathy [Recovered/Resolved]
  - Foetal exposure during pregnancy [Recovered/Resolved]

NARRATIVE: CASE EVENT DATE: 20131113
